FAERS Safety Report 8798571 (Version 1)
Quarter: 2012Q4

REPORT INFORMATION
  Report Type: 
  Country: US (occurrence: US)
  Receive Date: 20120920
  Receipt Date: 20120920
  Transmission Date: 20130627
  Serious: No
  Sender: FDA-Public Use
  Company Number: US-BAUSCH-BL-2012-000251

PATIENT
  Age: 72 Year
  Sex: Female

DRUGS (2)
  1. ERYTHROMYCIN [Suspect]
     Indication: POSTOPERATIVE CARE
     Dosage: 1 ribbon in each eye, at bedtime
     Route: 047
     Dates: start: 20120723, end: 20120724
  2. MACROGOL [Concomitant]

REACTIONS (2)
  - Eye irritation [Recovered/Resolved]
  - Eye pruritus [Not Recovered/Not Resolved]
